FAERS Safety Report 21565320 (Version 1)
Quarter: 2022Q4

REPORT INFORMATION
  Report Type: Spontaneous
  Country: US (occurrence: US)
  Receive Date: 20221108
  Receipt Date: 20221108
  Transmission Date: 20230113
  Serious: No
  Sender: FDA-Public Use
  Company Number: US-OYSTER POINT PHARMA, INC-US-OYS-22-000455

PATIENT

DRUGS (2)
  1. TYRVAYA [Suspect]
     Active Substance: VARENICLINE TARTRATE
     Indication: Product used for unknown indication
     Dosage: UNK UNK, BID
     Route: 045
  2. TYRVAYA [Suspect]
     Active Substance: VARENICLINE TARTRATE
     Dosage: UNK, QID
     Route: 045

REACTIONS (2)
  - Off label use [Unknown]
  - Therapy interrupted [Unknown]
